FAERS Safety Report 14351093 (Version 1)
Quarter: 2018Q1

REPORT INFORMATION
  Report Type: Spontaneous
  Country: JP (occurrence: JP)
  Receive Date: 20180104
  Receipt Date: 20180104
  Transmission Date: 20180509
  Serious: Yes (Death)
  Sender: FDA-Public Use
  Company Number: JP-HERITAGE PHARMACEUTICALS-2017HTG00382

PATIENT
  Sex: Female

DRUGS (14)
  1. SIBUTRAMINE [Concomitant]
     Active Substance: SIBUTRAMINE
     Route: 065
  2. DRAGON [Concomitant]
     Active Substance: CAMPHOR (NATURAL)\MENTHOL\METHYL SALICYLATE
     Route: 065
  3. DIPHENHYDRAMINE. [Suspect]
     Active Substance: DIPHENHYDRAMINE
     Indication: WEIGHT DECREASED
     Route: 065
  4. VENLOR XR [Suspect]
     Active Substance: VENLAFAXINE HYDROCHLORIDE
     Indication: WEIGHT DECREASED
     Route: 065
  5. DIAZEPAM. [Concomitant]
     Active Substance: DIAZEPAM
     Route: 065
  6. 666 XII [Concomitant]
     Route: 065
  7. MICRONASE [Concomitant]
     Active Substance: GLYBURIDE
     Route: 065
  8. CHLORPHENIRAMINE. [Suspect]
     Active Substance: CHLORPHENIRAMINE
     Indication: WEIGHT DECREASED
     Route: 065
  9. THYROID GLAND POWDER [Concomitant]
     Route: 065
  10. FASTIN [Concomitant]
     Active Substance: PHENTERMINE HYDROCHLORIDE
     Route: 065
  11. 666 XIII [Concomitant]
     Route: 065
  12. FLUOXETINE [Suspect]
     Active Substance: FLUOXETINE HYDROCHLORIDE
     Indication: WEIGHT DECREASED
     Route: 065
  13. BISACODYL. [Concomitant]
     Active Substance: BISACODYL
     Route: 065
  14. S CITADEP [Suspect]
     Active Substance: ESCITALOPRAM OXALATE
     Indication: WEIGHT DECREASED
     Route: 065

REACTIONS (9)
  - Toxicity to various agents [Fatal]
  - Serotonin syndrome [Fatal]
  - Overdose [Fatal]
  - Blister [None]
  - Skin abrasion [None]
  - Drug abuse [Fatal]
  - Arteriosclerosis coronary artery [None]
  - Rhabdomyolysis [Fatal]
  - Injury [None]
